FAERS Safety Report 19322807 (Version 1)
Quarter: 2021Q2

REPORT INFORMATION
  Report Type: Spontaneous
  Country: CN (occurrence: CN)
  Receive Date: 20210528
  Receipt Date: 20210528
  Transmission Date: 20210717
  Serious: Yes (Other)
  Sender: FDA-Public Use
  Company Number: CN-BAXTER-2021BAX013036

PATIENT
  Age: 49 Year
  Sex: Female
  Weight: 43 kg

DRUGS (4)
  1. ENDOXAN [Suspect]
     Active Substance: CYCLOPHOSPHAMIDE
     Indication: BREAST CANCER STAGE II
     Dosage: CYCLOPHOSPHAMIDE 0.8 G + 0.9% SODIUM CHLORIDE 100 ML
     Route: 041
     Dates: start: 20210420, end: 20210420
  2. 0.9% SODIUM CHLORIDE INJECTION [Suspect]
     Active Substance: SODIUM CHLORIDE
     Indication: MEDICATION DILUTION
     Dosage: 0.9% SODIUM CHLORIDE 100 ML + CYCLOPHOSPHAMIDE 0.8 G
     Route: 041
     Dates: start: 20210420, end: 20210420
  3. 5% GLUCOSE  INJECTION [Suspect]
     Active Substance: DEXTROSE
     Indication: MEDICATION DILUTION
     Dosage: 5% GLUCOSE 250 ML + PIRARUBICIN HYDROCHLORIDE 67 MG
     Route: 041
     Dates: start: 20210420, end: 20210420
  4. PIRARUBICIN HYDROCHLORIDE [Suspect]
     Active Substance: PIRARUBICIN HYDROCHLORIDE
     Indication: BREAST CANCER STAGE II
     Dosage: PIRARUBICIN HYDROCHLORIDE 67 MG + 5% GLUCOSE 250 ML
     Route: 041
     Dates: start: 20210420, end: 20210420

REACTIONS (2)
  - Leukopenia [Recovering/Resolving]
  - Neutropenia [Recovering/Resolving]

NARRATIVE: CASE EVENT DATE: 20210513
